FAERS Safety Report 10590627 (Version 4)
Quarter: 2014Q4

REPORT INFORMATION
  Report Type: Spontaneous
  Country: DE (occurrence: DE)
  Receive Date: 20141118
  Receipt Date: 20141126
  Transmission Date: 20150529
  Serious: Yes (Other)
  Sender: FDA-Public Use
  Company Number: DE-PFIZER INC-2014311047

PATIENT
  Age: 34 Year
  Sex: Female
  Weight: 63 kg

DRUGS (3)
  1. FEMIBION [Concomitant]
     Active Substance: VITAMINS
     Indication: PROPHYLAXIS OF NEURAL TUBE DEFECT
     Dosage: UNK, 3.-33. GESTATIONAL WEEK
     Route: 048
  2. CITALOPRAM [Suspect]
     Active Substance: CITALOPRAM HYDROBROMIDE
     Indication: ANXIETY DISORDER
     Dosage: 15 MG, DAILY, 0.-33. GESTATIONAL WEEK
     Route: 048
     Dates: start: 20130125, end: 20130913
  3. PANTOPRAZOLE [Suspect]
     Active Substance: PANTOPRAZOLE SODIUM
     Indication: DYSPEPSIA
     Dosage: 20 MG, DAILY, WEEK 0-9, 10-13, 26-30
     Route: 048

REACTIONS (2)
  - Amniorrhexis [Unknown]
  - Inflammatory marker increased [Unknown]
